FAERS Safety Report 4585566-3 (Version None)
Quarter: 2005Q1

REPORT INFORMATION
  Report Type: 
  Country: None (occurrence: None)
  Receive Date: 20050214
  Receipt Date: 20041007
  Transmission Date: 20050727
  Serious: Yes (Hospitalization)
  Sender: FDA-Public Use
  Company Number: 05-085

PATIENT
  Age: 69 Year
  Sex: Male

DRUGS (18)
  1. DEXAMETHASONE [Suspect]
     Indication: MULTIPLE MYELOMA
     Dosage: SEE IMAGE
     Dates: start: 20010729, end: 20010801
  2. DEXAMETHASONE [Suspect]
     Indication: MULTIPLE MYELOMA
     Dosage: SEE IMAGE
     Dates: start: 20010812, end: 20010815
  3. DEXAMETHASONE [Suspect]
     Indication: MULTIPLE MYELOMA
     Dosage: SEE IMAGE
     Dates: start: 20010906
  4. GENASENSE [Concomitant]
  5. OMEPRAZOLE [Concomitant]
  6. TRIMETHOPRIM/SULFAMETHOXALE [Concomitant]
  7. CALCIUM SUPPLEMENT [Concomitant]
  8. MULTI-VITAMIN [Concomitant]
  9. CEFTAZIDEIME [Concomitant]
  10. RANITIDINE [Concomitant]
  11. POTASSIUM CHLORIDE [Concomitant]
  12. DOCUSATE CALCIU [Concomitant]
  13. SENNA [Concomitant]
  14. LACTULOSE [Concomitant]
  15. FLUCONAZOLE [Concomitant]
  16. SIMETHICONE [Concomitant]
  17. CIPROFLOXACIN [Concomitant]
  18. PAMIDRONATE DISODIUM [Concomitant]

REACTIONS (5)
  - EPIGASTRIC DISCOMFORT [None]
  - NAUSEA [None]
  - PALLOR [None]
  - PYREXIA [None]
  - RASH MACULAR [None]
